FAERS Safety Report 16528001 (Version 3)
Quarter: 2019Q3

REPORT INFORMATION
  Report Type: Spontaneous
  Country: US (occurrence: US)
  Receive Date: 20190704
  Receipt Date: 20190710
  Transmission Date: 20191004
  Serious: Yes (Death, Hospitalization, Other)
  Sender: FDA-Public Use
  Company Number: US-PFIZER INC-2019282101

PATIENT
  Age: 30 Year
  Sex: Male

DRUGS (1)
  1. FENTANYL CITRATE. [Suspect]
     Active Substance: FENTANYL CITRATE
     Dosage: UNK (INSUFFLATING SIX BAGS)

REACTIONS (10)
  - Hypotension [Fatal]
  - Overdose [Fatal]
  - Multiple organ dysfunction syndrome [Fatal]
  - Brain death [Fatal]
  - Brain oedema [Fatal]
  - Rhabdomyolysis [Fatal]
  - Brain injury [Fatal]
  - Systemic inflammatory response syndrome [Fatal]
  - Muscle rigidity [Fatal]
  - Acute kidney injury [Fatal]
